FAERS Safety Report 8263249-6 (Version None)
Quarter: 2012Q2

REPORT INFORMATION
  Report Type: 
  Country: None (occurrence: None)
  Receive Date: 20120405
  Receipt Date: 20120328
  Transmission Date: 20120825
  Serious: Yes (Hospitalization)
  Sender: FDA-Public Use
  Company Number: US-US-EMD SERONO, INC.-7122531

PATIENT
  Sex: Female
  Weight: 128 kg

DRUGS (5)
  1. ADVAIR DISKUS 100/50 [Concomitant]
     Indication: ASTHMA
  2. SINGULAIR [Concomitant]
     Indication: ASTHMA
  3. ALLEGRA [Concomitant]
     Indication: SEASONAL ALLERGY
  4. REBIF [Suspect]
     Indication: MULTIPLE SCLEROSIS
     Route: 058
     Dates: start: 20120220, end: 20120301
  5. VENTOLIN [Concomitant]
     Indication: ASTHMA

REACTIONS (2)
  - RASH GENERALISED [None]
  - MULTIPLE SCLEROSIS RELAPSE [None]
